FAERS Safety Report 7952095-6 (Version None)
Quarter: 2011Q4

REPORT INFORMATION
  Report Type: 
  Country: None (occurrence: None)
  Receive Date: 20111201
  Receipt Date: 20111124
  Transmission Date: 20120403
  Serious: Yes (Hospitalization, Other)
  Sender: FDA-Public Use
  Company Number: PHHO2010ZA15903

PATIENT
  Sex: Male
  Weight: 66 kg

DRUGS (15)
  1. TASIGNA [Suspect]
     Indication: GASTROINTESTINAL STROMAL TUMOUR
     Dosage: 400 MG, BID
     Route: 048
     Dates: start: 20101013, end: 20101014
  2. ZAFOR [Suspect]
     Indication: NAUSEA
     Dosage: 400 MG, PRN
     Route: 048
     Dates: start: 20101017, end: 20101026
  3. TASIGNA [Suspect]
     Dosage: 400 MG, QD
  4. TASIGNA [Suspect]
     Dosage: 400 MG, QD
     Route: 048
     Dates: start: 20101119, end: 20110411
  5. IMATINIB MESYLATE [Suspect]
     Dosage: 400 MG, DAILY
     Route: 048
     Dates: start: 20110421, end: 20111102
  6. DURAGESIC-100 [Suspect]
     Dosage: UNK
  7. TASIGNA [Suspect]
     Dosage: 400 MG, BID
     Route: 048
     Dates: end: 20101101
  8. MORPHINE [Suspect]
     Dosage: UNK
  9. IRON SUPPLEMENTS [Concomitant]
     Dosage: UNK
  10. CALCIUM [Concomitant]
     Dosage: UNK
  11. OMEPRAZOLE [Concomitant]
     Indication: DYSPEPSIA
     Dosage: UNK
  12. IMATINIB MESYLATE [Suspect]
     Indication: GASTROINTESTINAL STROMAL TUMOUR
     Dosage: 400 MG, QD
     Route: 048
     Dates: start: 20110416, end: 20110417
  13. LENTOGESIC [Suspect]
     Indication: PAIN
     Dosage: UNK
     Route: 048
     Dates: start: 20101012, end: 20101026
  14. SUCRALFATE [Concomitant]
     Indication: DYSPEPSIA
     Dosage: UNK
  15. RABEPRAZOLE SODIUM [Concomitant]
     Indication: DYSPEPSIA
     Dosage: UNK

REACTIONS (31)
  - INTESTINAL OBSTRUCTION [None]
  - ABDOMINAL PAIN [None]
  - RED BLOOD CELL COUNT DECREASED [None]
  - UNEVALUABLE EVENT [None]
  - NEOPLASM MALIGNANT [None]
  - BLOOD ALBUMIN DECREASED [None]
  - RED BLOOD CELL SEDIMENTATION RATE INCREASED [None]
  - VOMITING [None]
  - NAUSEA [None]
  - CONSTIPATION [None]
  - DECREASED APPETITE [None]
  - PYREXIA [None]
  - INFLAMMATION [None]
  - NEOPLASM PROGRESSION [None]
  - HAEMATOCRIT DECREASED [None]
  - MEAN CELL HAEMOGLOBIN DECREASED [None]
  - PLATELET COUNT INCREASED [None]
  - BLOOD SODIUM DECREASED [None]
  - C-REACTIVE PROTEIN INCREASED [None]
  - NEUTROPHIL COUNT INCREASED [None]
  - HYPERCALCAEMIA [None]
  - BLOOD CHLORIDE DECREASED [None]
  - HYPOPHAGIA [None]
  - HAEMOGLOBIN DECREASED [None]
  - RED CELL DISTRIBUTION WIDTH INCREASED [None]
  - NO THERAPEUTIC RESPONSE [None]
  - GASTROINTESTINAL STROMAL TUMOUR [None]
  - MONOCYTE COUNT INCREASED [None]
  - BACK PAIN [None]
  - WHITE BLOOD CELL COUNT INCREASED [None]
  - SMALL INTESTINAL OBSTRUCTION [None]
